FAERS Safety Report 7737024-2 (Version None)
Quarter: 2011Q3

REPORT INFORMATION
  Report Type: 
  Country: None (occurrence: None)
  Receive Date: 20110908
  Receipt Date: 20110825
  Transmission Date: 20111222
  Serious: Yes (Hospitalization)
  Sender: FDA-Public Use
  Company Number: US-ELI_LILLY_AND_COMPANY-US201107005761

PATIENT
  Sex: Female
  Weight: 67.13 kg

DRUGS (8)
  1. FORTEO [Suspect]
     Dosage: 20 UG, QD
     Route: 058
  2. VERAPAMIL [Concomitant]
     Indication: HYPERTENSION
  3. TOPROL-XL [Concomitant]
     Indication: HYPERTENSION
  4. FORTEO [Suspect]
     Dosage: 20 UG, QOD
     Route: 058
  5. VITAMIN D [Concomitant]
  6. FORTEO [Suspect]
     Indication: OSTEOPOROSIS
     Dosage: 20 UG, QD
     Route: 058
     Dates: start: 20110101
  7. FORTEO [Suspect]
     Dosage: 20 UG, WEEKLY (1/W)
     Route: 058
     Dates: end: 20110501
  8. CALCIUM CARBONATE [Concomitant]

REACTIONS (14)
  - HEART RATE IRREGULAR [None]
  - PARAESTHESIA [None]
  - BLOOD COUNT ABNORMAL [None]
  - HEART RATE INCREASED [None]
  - SPINAL DISORDER [None]
  - DIARRHOEA [None]
  - BACK PAIN [None]
  - INTERVERTEBRAL DISC DISORDER [None]
  - HYPOAESTHESIA [None]
  - DIZZINESS [None]
  - DYSPNOEA [None]
  - NAUSEA [None]
  - DRUG PRESCRIBING ERROR [None]
  - DYSPEPSIA [None]
